FAERS Safety Report 22251520 (Version 2)
Quarter: 2023Q2

REPORT INFORMATION
  Report Type: Report from Study
  Country: FR (occurrence: FR)
  Receive Date: 20230425
  Receipt Date: 20230505
  Transmission Date: 20230721
  Serious: Yes (Hospitalization)
  Sender: FDA-Public Use
  Company Number: FR-BIOMARINAP-FR-2023-149846

PATIENT

DRUGS (8)
  1. BRINEURA [Suspect]
     Active Substance: CERLIPONASE ALFA
     Indication: Neuronal ceroid lipofuscinosis
     Dosage: 300 MILLIGRAM, QOW
     Route: 020
     Dates: start: 20220728
  2. KEPPRA [Concomitant]
     Active Substance: LEVETIRACETAM
     Indication: Epilepsy
     Dosage: ~~~
     Dates: start: 20210113
  3. KEPPRA [Concomitant]
     Active Substance: LEVETIRACETAM
     Dosage: ~~~
     Dates: start: 20210113
  4. RIVOTRIL [Concomitant]
     Active Substance: CLONAZEPAM
     Indication: Epilepsy
     Dosage: ~~~
     Dates: start: 20210113
  5. CLONIDINE [Concomitant]
     Active Substance: CLONIDINE
     Indication: Hypertension
     Dosage: ~~~
     Dates: start: 20210201
  6. CLONIDINE [Concomitant]
     Active Substance: CLONIDINE
     Dosage: ~~~
     Dates: start: 20210201
  7. MELATONINE ISOTEC [Concomitant]
     Indication: Sleep disorder
     Dosage: ~~~
     Dates: start: 20210216
  8. RISPERDAL [Concomitant]
     Active Substance: RISPERIDONE
     Indication: Mania
     Dosage: ~~~
     Dates: start: 20210216

REACTIONS (1)
  - Dystonia [Recovered/Resolved]

NARRATIVE: CASE EVENT DATE: 20230406
